FAERS Safety Report 5225280-4 (Version None)
Quarter: 2007Q1

REPORT INFORMATION
  Report Type: 
  Country: None (occurrence: None)
  Receive Date: 20070131
  Receipt Date: 20061208
  Transmission Date: 20070707
  Serious: No
  Sender: FDA-Public Use
  Company Number: US-AMGEN-US202964

PATIENT
  Sex: Male

DRUGS (9)
  1. VECTIBIX [Suspect]
     Indication: COLORECTAL CANCER
     Dates: start: 20061128
  2. XALATAN [Concomitant]
  3. HERBAL SUPPLEMENT [Concomitant]
  4. ASCORBIC ACID [Concomitant]
  5. VITAMIN D [Concomitant]
  6. ENZYMES [Concomitant]
  7. LORATADINE [Concomitant]
  8. LISINOPRIL [Concomitant]
  9. CAMPTOSAR [Concomitant]

REACTIONS (5)
  - ERYTHEMA [None]
  - EYE DISORDER [None]
  - EYE PRURITUS [None]
  - OCULAR HYPERAEMIA [None]
  - PRURITUS [None]
